FAERS Safety Report 14288987 (Version 1)
Quarter: 2017Q4

REPORT INFORMATION
  Report Type: Report from Study
  Country: US (occurrence: US)
  Receive Date: 20171214
  Receipt Date: 20171214
  Transmission Date: 20180321
  Serious: No
  Sender: FDA-Public Use
  Company Number: PHEH2017US039557

PATIENT
  Sex: Female

DRUGS (1)
  1. GILENYA [Suspect]
     Active Substance: FINGOLIMOD HYDROCHLORIDE
     Indication: MULTIPLE SCLEROSIS
     Dosage: 0.5 MG, QD
     Route: 048
     Dates: start: 20171129, end: 201712

REACTIONS (10)
  - Diarrhoea [Unknown]
  - Weight decreased [Unknown]
  - Anxiety [Unknown]
  - Extrasystoles [Unknown]
  - Pain in extremity [Unknown]
  - Insomnia [Unknown]
  - Depression [Unknown]
  - Frustration tolerance decreased [Unknown]
  - Depressed mood [Unknown]
  - Decreased appetite [Unknown]
